FAERS Safety Report 14578462 (Version 1)
Quarter: 2018Q1

REPORT INFORMATION
  Report Type: Spontaneous
  Country: US (occurrence: US)
  Receive Date: 20180227
  Receipt Date: 20180227
  Transmission Date: 20180509
  Serious: Yes (Life-Threatening, Disabling, Other)
  Sender: FDA-Public Use
  Company Number: None

PATIENT
  Age: 71 Year
  Sex: Female
  Weight: 81.65 kg

DRUGS (10)
  1. SERTRALINE [Concomitant]
     Active Substance: SERTRALINE HYDROCHLORIDE
  2. MULTI VITAMINS [Concomitant]
     Active Substance: VITAMINS
  3. TRAZODONE [Concomitant]
     Active Substance: TRAZODONE HYDROCHLORIDE
  4. OCUVITE WITH LUTEIN [Concomitant]
  5. VITAMIN D3 [Concomitant]
     Active Substance: CHOLECALCIFEROL
  6. REPATHA [Suspect]
     Active Substance: EVOLOCUMAB
     Indication: BLOOD CHOLESTEROL
     Dosage: FREQUENCY - 2 X A MONTH?(THIS SYRINGE NOT USED-HAVE A SHARPA BOX WITH EMPTY ONES)
     Route: 058
     Dates: start: 20160928, end: 20170102
  7. TRIAM/HCTZ [Concomitant]
     Active Substance: HYDROCHLOROTHIAZIDE\TRIAMTERENE
  8. CLONAZEPAM. [Concomitant]
     Active Substance: CLONAZEPAM
  9. METOPROLOL. [Concomitant]
     Active Substance: METOPROLOL
  10. ASA [Concomitant]
     Active Substance: ASPIRIN

REACTIONS (5)
  - Fall [None]
  - Muscle spasms [None]
  - Headache [None]
  - Hypoaesthesia [None]
  - Movement disorder [None]

NARRATIVE: CASE EVENT DATE: 20161107
